FAERS Safety Report 21026671 (Version 4)
Quarter: 2024Q2

REPORT INFORMATION
  Report Type: Spontaneous
  Country: US (occurrence: US)
  Receive Date: 20220630
  Receipt Date: 20240422
  Transmission Date: 20240716
  Serious: Yes (Hospitalization, Other)
  Sender: FDA-Public Use
  Company Number: US-SA-SAC20220628002090

PATIENT
  Age: 46 Year
  Sex: Female
  Weight: 62 kg

DRUGS (10)
  1. AUBAGIO [Suspect]
     Active Substance: TERIFLUNOMIDE
     Indication: Multiple sclerosis
     Dosage: 7MG, QD
     Route: 048
     Dates: start: 20190107
  2. METHIMAZOLE [Suspect]
     Active Substance: METHIMAZOLE
     Indication: Thyroid disorder
     Dosage: UNK
  3. MELATONIN [Concomitant]
     Active Substance: MELATONIN
     Dosage: UNK
  4. LAMOTRIGINE [Concomitant]
     Active Substance: LAMOTRIGINE
     Dosage: UNK
  5. GABAPENTIN [Concomitant]
     Active Substance: GABAPENTIN
     Dosage: UNK
  6. METOPROLOL TARTRATE [Concomitant]
     Active Substance: METOPROLOL TARTRATE
     Dosage: UNK
  7. RELAFEN [Concomitant]
     Active Substance: NABUMETONE
  8. CYCLOBENZAPRINE [Concomitant]
     Active Substance: CYCLOBENZAPRINE
     Dosage: UNK
  9. DIAZEPAM [Concomitant]
     Active Substance: DIAZEPAM
     Dosage: UNK
  10. LAMICTAL [Concomitant]
     Active Substance: LAMOTRIGINE
     Dosage: UNK

REACTIONS (18)
  - General physical condition abnormal [Unknown]
  - Bipolar disorder [Unknown]
  - Suicidal ideation [Unknown]
  - Muscle spasms [Unknown]
  - Anxiety [Unknown]
  - Vertigo [Unknown]
  - Depression [Unknown]
  - Panic attack [Unknown]
  - Migraine [Unknown]
  - Dizziness [Unknown]
  - Tremor [Unknown]
  - Memory impairment [Unknown]
  - Balance disorder [Unknown]
  - Myalgia [Unknown]
  - Headache [Unknown]
  - Product use issue [Unknown]
  - Product prescribing issue [Unknown]
  - Drug intolerance [Unknown]

NARRATIVE: CASE EVENT DATE: 20220729
